FAERS Safety Report 14392288 (Version 1)
Quarter: 2018Q1

REPORT INFORMATION
  Report Type: Spontaneous
  Country: US (occurrence: US)
  Receive Date: 20180116
  Receipt Date: 20180116
  Transmission Date: 20180509
  Serious: No
  Sender: FDA-Public Use
  Company Number: US-BAYER-2018-009244

PATIENT
  Age: 66 Year
  Sex: Female

DRUGS (1)
  1. FINACEA [Suspect]
     Active Substance: AZELAIC ACID
     Indication: SKIN DISCOLOURATION
     Dosage: UNK
     Dates: start: 20180112, end: 201801

REACTIONS (3)
  - Nausea [None]
  - Diarrhoea [None]
  - Eye irritation [None]

NARRATIVE: CASE EVENT DATE: 20180113
